FAERS Safety Report 4582662-1 (Version None)
Quarter: 2005Q1

REPORT INFORMATION
  Report Type: 
  Country: None (occurrence: None)
  Receive Date: 20050215
  Receipt Date: 20050204
  Transmission Date: 20050727
  Serious: Yes (Life-Threatening, Hospitalization, Disabling)
  Sender: FDA-Public Use
  Company Number: US-MERCK-0502USA00575

PATIENT
  Age: 53 Year
  Sex: Female

DRUGS (12)
  1. VIOXX [Suspect]
     Indication: ANTIINFLAMMATORY THERAPY
     Route: 048
     Dates: start: 20020316
  2. VIOXX [Suspect]
     Indication: ARTHRITIS
     Route: 048
     Dates: start: 20020316
  3. NEURONTIN [Concomitant]
     Route: 065
  4. DETROL [Concomitant]
     Route: 065
  5. VALIUM [Concomitant]
     Route: 065
  6. CELEXA [Concomitant]
     Route: 065
  7. SOMA [Concomitant]
     Route: 065
  8. CLARINEX [Concomitant]
     Route: 065
  9. BENTYL [Concomitant]
     Route: 065
  10. LORCET-HD [Concomitant]
     Route: 065
  11. ALBUTEROL [Concomitant]
     Route: 065
  12. [THERAPY UNSPECIFIED] [Concomitant]
     Route: 065

REACTIONS (2)
  - CEREBROVASCULAR ACCIDENT [None]
  - CHEST PAIN [None]
